FAERS Safety Report 22254507 (Version 2)
Quarter: 2023Q2

REPORT INFORMATION
  Report Type: Spontaneous
  Country: US (occurrence: US)
  Receive Date: 20230426
  Receipt Date: 20230629
  Transmission Date: 20230721
  Serious: No
  Sender: FDA-Public Use
  Company Number: US-Emergent Biosolutions-23000132

PATIENT
  Sex: Male

DRUGS (1)
  1. CNJ-016 [Suspect]
     Active Substance: HUMAN VACCINIA VIRUS IMMUNE GLOBULIN
     Indication: Monkeypox
     Route: 065

REACTIONS (3)
  - Infusion related reaction [Unknown]
  - Bone pain [Unknown]
  - Off label use [Unknown]
